FAERS Safety Report 19713879 (Version 3)
Quarter: 2021Q4

REPORT INFORMATION
  Report Type: Report from Study
  Country: CA (occurrence: CA)
  Receive Date: 20210818
  Receipt Date: 20211231
  Transmission Date: 20220303
  Serious: Yes (Other)
  Sender: FDA-Public Use
  Company Number: CA-JNJFOC-20210821016

PATIENT
  Age: 33 Year
  Sex: Female
  Weight: 62 kg

DRUGS (2)
  1. STELARA [Suspect]
     Active Substance: USTEKINUMAB
     Indication: Crohn^s disease
     Route: 058
     Dates: start: 20190209
  2. STELARA [Suspect]
     Active Substance: USTEKINUMAB

REACTIONS (12)
  - Haematochezia [Recovered/Resolved]
  - Cluster headache [Recovered/Resolved]
  - Nephrolithiasis [Recovering/Resolving]
  - Anaemia [Not Recovered/Not Resolved]
  - Pain [Unknown]
  - Gastrointestinal disorder [Recovering/Resolving]
  - Abdominal pain [Not Recovered/Not Resolved]
  - Asthenia [Not Recovered/Not Resolved]
  - Nausea [Recovering/Resolving]
  - Vomiting [Recovering/Resolving]
  - Off label use [Unknown]
  - Product use in unapproved indication [Unknown]

NARRATIVE: CASE EVENT DATE: 20190209
